FAERS Safety Report 11233692 (Version 1)
Quarter: 2015Q3

REPORT INFORMATION
  Report Type: Spontaneous
  Country: CA (occurrence: CA)
  Receive Date: 20150702
  Receipt Date: 20150702
  Transmission Date: 20151125
  Serious: Yes (Other)
  Sender: FDA-Public Use
  Company Number: CA-TEVA-574668ACC

PATIENT
  Age: 79 Year
  Sex: Male
  Weight: 73.55 kg

DRUGS (5)
  1. ATENOL [Concomitant]
     Active Substance: ATENOLOL
     Route: 065
  2. CALCIUM AND MAGNESIUM WITH VITAMIN D [Concomitant]
     Route: 065
  3. ASPIRIN. [Concomitant]
     Active Substance: ASPIRIN
     Route: 065
  4. TEVA-RISEDRONATE [Suspect]
     Active Substance: RISEDRONATE SODIUM
     Indication: PRODUCT USED FOR UNKNOWN INDICATION
     Route: 048
  5. SYNTHROID [Concomitant]
     Active Substance: LEVOTHYROXINE SODIUM
     Route: 065

REACTIONS (2)
  - Anal haemorrhage [Unknown]
  - Condition aggravated [Unknown]
